FAERS Safety Report 5885998-7 (Version None)
Quarter: 2008Q3

REPORT INFORMATION
  Report Type: 
  Country: None (occurrence: None)
  Receive Date: 20080912
  Receipt Date: 20080829
  Transmission Date: 20090109
  Serious: Yes (Life-Threatening, Hospitalization)
  Sender: FDA-Public Use
  Company Number: 95105

PATIENT
  Age: 41 Year
  Sex: Male

DRUGS (1)
  1. ACETAMINOPHEN EXTENDED RELEASE TABLETS / 650 MG [Suspect]
     Dosage: 3.5 G UNK ORAL
     Route: 048

REACTIONS (2)
  - GRANULOMA [None]
  - HEPATIC CIRRHOSIS [None]
